FAERS Safety Report 4487735-X (Version None)
Quarter: 2004Q4

REPORT INFORMATION
  Report Type: 
  Country: None (occurrence: None)
  Receive Date: 20041025
  Receipt Date: 20041011
  Transmission Date: 20050328
  Serious: Yes (Life-Threatening, Hospitalization)
  Sender: FDA-Public Use
  Company Number: HQWYE706012OCT04

PATIENT
  Age: 38 Year
  Sex: Female

DRUGS (2)
  1. CORDARONE [Suspect]
     Indication: ATRIAL FIBRILLATION
     Dosage: 100 MG 1X PER 1 DAY, ORAL
     Route: 048
     Dates: start: 20010515, end: 20030605
  2. CORDARONE [Suspect]
     Indication: ATRIAL FLUTTER
     Dosage: 100 MG 1X PER 1 DAY, ORAL
     Route: 048
     Dates: start: 20010515, end: 20030605

REACTIONS (8)
  - ALANINE AMINOTRANSFERASE INCREASED [None]
  - ASPARTATE AMINOTRANSFERASE INCREASED [None]
  - ATRIAL FIBRILLATION [None]
  - CARDIAC FAILURE [None]
  - DRUG EFFECT DECREASED [None]
  - HEPATOJUGULAR REFLUX [None]
  - HYPERTHYROIDISM [None]
  - THYROIDITIS [None]
